FAERS Safety Report 20655011 (Version 1)
Quarter: 2022Q1

REPORT INFORMATION
  Report Type: Spontaneous
  Country: US (occurrence: None)
  Receive Date: 20220330
  Receipt Date: 20220330
  Transmission Date: 20220423
  Serious: Yes (Hospitalization)
  Sender: FDA-Public Use
  Company Number: None

PATIENT
  Sex: Male
  Weight: 70.9 kg

DRUGS (10)
  1. CYCLOPHOSPHAMIDE [Suspect]
     Active Substance: CYCLOPHOSPHAMIDE
     Dates: start: 20210302, end: 20220221
  2. CYTARABINE [Suspect]
     Active Substance: CYTARABINE
     Dates: start: 20210302, end: 20220303
  3. DEXAMETHASONE [Suspect]
     Active Substance: DEXAMETHASONE
     Dates: start: 20210302, end: 20220123
  4. ZINECARD [Suspect]
     Active Substance: DEXRAZOXANE HYDROCHLORIDE
     Dates: start: 20210302, end: 20220131
  5. DOXORUBICIN HYDROCHLORIDE [Suspect]
     Active Substance: DOXORUBICIN HYDROCHLORIDE
     Dates: start: 20210302, end: 20220131
  6. METHOTREXATE [Suspect]
     Active Substance: METHOTREXATE
     Dates: start: 20210302, end: 20220228
  7. ONCASPAR [Suspect]
     Active Substance: PEGASPARGASE
     Dates: start: 20210302, end: 20220110
  8. GLEEVEC [Suspect]
     Active Substance: IMATINIB MESYLATE
     Dates: start: 20210302, end: 20220316
  9. THIOGUANINE ANHYDROUS [Suspect]
     Active Substance: THIOGUANINE ANHYDROUS
     Dates: start: 20210302, end: 20220307
  10. VINCRISTINE SULFATE [Suspect]
     Active Substance: VINCRISTINE SULFATE
     Dates: start: 20210302, end: 20220131

REACTIONS (5)
  - Cardio-respiratory arrest [None]
  - Unresponsive to stimuli [None]
  - Pulse absent [None]
  - Left ventricular dysfunction [None]
  - Ventricular fibrillation [None]

NARRATIVE: CASE EVENT DATE: 20220328
